FAERS Safety Report 15485502 (Version 1)
Quarter: 2018Q4

REPORT INFORMATION
  Report Type: Spontaneous
  Country: FR (occurrence: FR)
  Receive Date: 20181010
  Receipt Date: 20181010
  Transmission Date: 20190205
  Serious: Yes (Hospitalization, Other)
  Sender: FDA-Public Use
  Company Number: PHHY2018FR121498

PATIENT
  Age: 61 Year
  Sex: Female

DRUGS (2)
  1. AUGMENTIN [Suspect]
     Active Substance: AMOXICILLIN\CLAVULANATE POTASSIUM
     Indication: BRONCHITIS
     Dosage: NP
     Route: 048
     Dates: start: 20180629
  2. DICLOFENAC [Suspect]
     Active Substance: DICLOFENAC
     Indication: BRONCHITIS
     Dosage: NP
     Route: 048
     Dates: start: 20180629

REACTIONS (3)
  - Cholestasis [Recovering/Resolving]
  - Hepatitis acute [Recovering/Resolving]
  - Hepatocellular injury [Recovering/Resolving]

NARRATIVE: CASE EVENT DATE: 201807
